FAERS Safety Report 9101177 (Version 2)
Quarter: 2013Q1

REPORT INFORMATION
  Report Type: Spontaneous
  Country: JP (occurrence: JP)
  Receive Date: 20130218
  Receipt Date: 20130228
  Transmission Date: 20140127
  Serious: Yes (Death, Hospitalization)
  Sender: FDA-Public Use
  Company Number: JP-BAXTER-2013BAX000323

PATIENT
  Age: 88 Year
  Sex: Female
  Weight: 42 kg

DRUGS (6)
  1. DIANEAL-N PD-4 1.5 PD SOLUTION [Suspect]
     Indication: RENAL AMYLOIDOSIS
     Route: 033
  2. DIANEAL-N PD-4 1.5 PD SOLUTION [Suspect]
     Route: 033
     Dates: start: 20121029, end: 20130109
  3. CRESTOR [Concomitant]
     Indication: DYSLIPIDAEMIA
     Route: 048
     Dates: end: 20130109
  4. GASTER D [Concomitant]
     Indication: GASTRITIS
     Route: 048
     Dates: start: 20121025, end: 20130108
  5. WYPAX [Concomitant]
     Indication: INSOMNIA
     Route: 048
     Dates: end: 20130108
  6. SENNOSIDE [Concomitant]
     Indication: CONSTIPATION
     Route: 048
     Dates: end: 20130108

REACTIONS (4)
  - Cardiac amyloidosis [Fatal]
  - Immunosuppression [Unknown]
  - Blood pressure decreased [Unknown]
  - Peritonitis bacterial [Unknown]
